FAERS Safety Report 7541492-9 (Version None)
Quarter: 2011Q2

REPORT INFORMATION
  Report Type: 
  Country: None (occurrence: None)
  Receive Date: 20110613
  Receipt Date: 20091201
  Transmission Date: 20111010
  Serious: No
  Sender: FDA-Public Use
  Company Number: 2009BI039459

PATIENT
  Sex: Female

DRUGS (1)
  1. TYSABRI [Suspect]
     Indication: MULTIPLE SCLEROSIS
     Route: 042
     Dates: start: 20090323

REACTIONS (5)
  - DRUG INEFFECTIVE [None]
  - PAIN [None]
  - MULTIPLE SCLEROSIS [None]
  - BALANCE DISORDER [None]
  - GAIT DISTURBANCE [None]
